FAERS Safety Report 6600360-7 (Version None)
Quarter: 2010Q1

REPORT INFORMATION
  Report Type: 
  Country: None (occurrence: None)
  Receive Date: 20100224
  Receipt Date: 20100216
  Transmission Date: 20100710
  Serious: Yes (Other)
  Sender: FDA-Public Use
  Company Number: US-AMGEN-QUU393260

PATIENT
  Sex: Female

DRUGS (2)
  1. ENBREL [Suspect]
     Indication: RHEUMATOID ARTHRITIS
     Route: 058
  2. ENBREL [Suspect]
     Indication: PSORIASIS

REACTIONS (5)
  - DRUG INEFFECTIVE [None]
  - MELANOCYTIC NAEVUS [None]
  - NEOPLASM MALIGNANT [None]
  - PSORIASIS [None]
  - SPINAL FRACTURE [None]
